FAERS Safety Report 9733620 (Version 1)
Quarter: 2013Q4

REPORT INFORMATION
  Report Type: Spontaneous
  Country: US (occurrence: US)
  Receive Date: 20131205
  Receipt Date: 20131205
  Transmission Date: 20140711
  Serious: No
  Sender: FDA-Public Use
  Company Number: US-ENDO PHARMACEUTICALS INC.-METH20120008

PATIENT
  Age: 58 Year
  Sex: Female

DRUGS (2)
  1. METHYLPREDNISOLONE TABLETS 4MG (21 TABS) [Suspect]
     Indication: HYPERSENSITIVITY
     Route: 048
     Dates: start: 20120723
  2. ALCOHOL [Suspect]
     Route: 048
     Dates: start: 20120724

REACTIONS (2)
  - Flushing [Recovered/Resolved]
  - Drug interaction [Recovered/Resolved]
